FAERS Safety Report 11465263 (Version 1)
Quarter: 2015Q3

REPORT INFORMATION
  Report Type: Spontaneous
  Country: GB (occurrence: GB)
  Receive Date: 20150907
  Receipt Date: 20150907
  Transmission Date: 20151125
  Serious: Yes (Other)
  Sender: FDA-Public Use
  Company Number: GB-AUROBINDO-AUR-APL-2015-07658

PATIENT
  Age: 68 Year
  Sex: Female
  Weight: 70 kg

DRUGS (3)
  1. ENALAPRIL MALEATE TABLETS 20 MG [Suspect]
     Active Substance: ENALAPRIL MALEATE
     Indication: HYPERTENSION
     Dosage: 20 MG, ONCE A DAY
     Route: 065
     Dates: start: 1997
  2. ENALAPRIL MALEATE TABLETS 20 MG [Suspect]
     Active Substance: ENALAPRIL MALEATE
     Dosage: 20 MG, TWO TIMES A DAY
     Route: 065
     Dates: start: 2009
  3. AMLODIPINE [Suspect]
     Active Substance: AMLODIPINE BESYLATE
     Indication: PRODUCT USED FOR UNKNOWN INDICATION
     Dosage: 10 MG, ONCE A DAY
     Route: 065
     Dates: start: 1997

REACTIONS (3)
  - Proteinuria [Not Recovered/Not Resolved]
  - Renal disorder [Unknown]
  - Immune system disorder [None]

NARRATIVE: CASE EVENT DATE: 1997
